FAERS Safety Report 4822218-6 (Version None)
Quarter: 2005Q4

REPORT INFORMATION
  Report Type: 
  Country: None (occurrence: None)
  Receive Date: 20051103
  Receipt Date: 20051018
  Transmission Date: 20060501
  Serious: Yes (Other)
  Sender: FDA-Public Use
  Company Number: USA0510111154

PATIENT
  Sex: Female

DRUGS (4)
  1. HUMULIN 70/30 [Suspect]
     Indication: DIABETES MELLITUS NON-INSULIN-DEPENDENT
     Dosage: 140 U DAY
     Dates: start: 20000101
  2. TOPAMAX [Concomitant]
  3. KLONOPIN [Concomitant]
  4. NEURONTIN        /SCH/ (GABAPENTIN) [Concomitant]

REACTIONS (14)
  - ASTHENIA [None]
  - BIPOLAR DISORDER [None]
  - BLOOD GLUCOSE INCREASED [None]
  - CONDITION AGGRAVATED [None]
  - CONVULSION [None]
  - DEPRESSION [None]
  - DISORIENTATION [None]
  - DYSPHONIA [None]
  - EATING DISORDER [None]
  - HYPOGLYCAEMIA [None]
  - INSOMNIA [None]
  - POOR QUALITY DRUG ADMINISTERED [None]
  - STRESS [None]
  - WEIGHT DECREASED [None]
